FAERS Safety Report 8177929-4 (Version None)
Quarter: 2012Q1

REPORT INFORMATION
  Report Type: 
  Country: None (occurrence: None)
  Receive Date: 20120301
  Receipt Date: 20120229
  Transmission Date: 20120608
  Serious: Yes (Life-Threatening, Hospitalization)
  Sender: FDA-Public Use
  Company Number: PH-B.I. PHARMACEUTICALS,INC./RIDGEFIELD-2012-CS-00238RP

PATIENT
  Age: 72 Year
  Sex: Female

DRUGS (2)
  1. PRADAXA [Suspect]
     Indication: CEREBROVASCULAR ACCIDENT PROPHYLAXIS
     Dosage: 150 MG
     Route: 048
     Dates: start: 20110901
  2. PRADAXA [Suspect]
     Dosage: 75 MG
     Route: 048
     Dates: end: 20120201

REACTIONS (2)
  - THROMBOTIC CEREBRAL INFARCTION [None]
  - CONTUSION [None]
